FAERS Safety Report 15647301 (Version 2)
Quarter: 2018Q4

REPORT INFORMATION
  Report Type: Spontaneous
  Country: DE (occurrence: DE)
  Receive Date: 20181122
  Receipt Date: 20181203
  Transmission Date: 20190205
  Serious: Yes (Other)
  Sender: FDA-Public Use
  Company Number: DE-TEVA-2018-DE-977145

PATIENT
  Age: 20 Year
  Sex: Female

DRUGS (1)
  1. DICLOFENAC-RATIOPHARM LOESUNG BEI MIGRAENE [Suspect]
     Active Substance: DICLOFENAC
     Indication: PAIN
     Dosage: GOT THE PRODUCT FOR THE FIRST TIME
     Route: 048
     Dates: start: 20181114, end: 20181114

REACTIONS (2)
  - Anaphylactic shock [Recovered/Resolved]
  - Confusional state [Recovered/Resolved]

NARRATIVE: CASE EVENT DATE: 20181114
